FAERS Safety Report 21707688 (Version 1)
Quarter: 2022Q4

REPORT INFORMATION
  Report Type: Report from Study
  Country: JP (occurrence: JP)
  Receive Date: 20221209
  Receipt Date: 20221209
  Transmission Date: 20230112
  Serious: Yes (Hospitalization, Other)
  Sender: FDA-Public Use
  Company Number: JP-BRISTOL-MYERS SQUIBB COMPANY-BMS-2018-085565

PATIENT
  Age: 66 Year
  Sex: Male
  Weight: 57.900 kg

DRUGS (14)
  1. ABRAXANE [Suspect]
     Active Substance: PACLITAXEL
     Indication: Gastric cancer
     Dosage: 160 MG, QD
     Route: 042
     Dates: start: 20180906
  2. RAMUCIRUMAB [Suspect]
     Active Substance: RAMUCIRUMAB
     Indication: Gastric cancer
     Dosage: 460 MG, QD
     Route: 042
     Dates: start: 20180906
  3. OXALIPLATIN [Suspect]
     Active Substance: OXALIPLATIN
     Indication: Gastric cancer
     Dates: start: 20171108, end: 20171108
  4. OXALIPLATIN [Suspect]
     Active Substance: OXALIPLATIN
     Dates: start: 20171128, end: 20180809
  5. GIMERACIL\OTERACIL\TEGAFUR [Suspect]
     Active Substance: GIMERACIL\OTERACIL\TEGAFUR
     Indication: Gastric cancer
     Dates: start: 20171108, end: 20171112
  6. GIMERACIL\OTERACIL\TEGAFUR [Suspect]
     Active Substance: GIMERACIL\OTERACIL\TEGAFUR
     Dates: start: 20171128, end: 20180823
  7. RABEPRAZOLE SODIUM [Concomitant]
     Active Substance: RABEPRAZOLE SODIUM
     Indication: Prophylaxis
     Dosage: 1 TAB 1 TAB 1 TAB, QD
     Route: 048
     Dates: start: 20171025
  8. TAMSULOSIN HYDROCHLORIDE [Concomitant]
     Active Substance: TAMSULOSIN HYDROCHLORIDE
     Indication: Prophylaxis
     Dosage: 1 TAB 1 TAB 1 TAB, QD
     Route: 048
     Dates: start: 20171120
  9. MAGNESIUM OXIDE [Concomitant]
     Active Substance: MAGNESIUM OXIDE
     Indication: Prophylaxis
     Dosage: 0.5 G, TID
     Route: 048
     Dates: start: 20171027
  10. REBAMIPIDE [Concomitant]
     Active Substance: REBAMIPIDE
     Indication: Prophylaxis
     Dosage: 3 TAB 1 TAB 1 TAB, TID
     Route: 048
     Dates: start: 20171025
  11. CERNILTON                          /00521401/ [Concomitant]
     Indication: Prophylaxis
     Dosage: 6 TAB 2 TAB 2 TAB, TID
     Route: 048
     Dates: start: 20171024
  12. OXYCODONE HYDROCHLORIDE [Concomitant]
     Active Substance: OXYCODONE HYDROCHLORIDE
     Indication: Cancer pain
     Dosage: 2 TAB 1 TAB 1 TAB, BID
     Route: 048
     Dates: start: 20171027
  13. DIPHENHYDRAMINE [Concomitant]
     Active Substance: DIPHENHYDRAMINE
     Indication: Premedication
     Dosage: 5 TAB 5 TAB 5 TAB, QD
     Route: 048
     Dates: start: 20180906
  14. DEXAMETHASONE SODIUM PHOSPHATE [Concomitant]
     Active Substance: DEXAMETHASONE SODIUM PHOSPHATE
     Indication: Premedication
     Dosage: 2 ML, QD
     Route: 042
     Dates: start: 20180906

REACTIONS (2)
  - Febrile neutropenia [Recovered/Resolved]
  - Skin infection [Recovered/Resolved]

NARRATIVE: CASE EVENT DATE: 20180913
